FAERS Safety Report 5384403-7 (Version None)
Quarter: 2007Q3

REPORT INFORMATION
  Report Type: 
  Country: None (occurrence: None)
  Receive Date: 20070711
  Receipt Date: 20070220
  Transmission Date: 20080115
  Serious: No
  Sender: FDA-Public Use
  Company Number: US-AMGEN-KDL211948

PATIENT
  Sex: Male

DRUGS (2)
  1. KINERET [Suspect]
     Indication: JUVENILE ARTHRITIS
     Route: 058
     Dates: start: 20060701
  2. METHOTREXATE [Concomitant]
     Dates: start: 19940101

REACTIONS (2)
  - INJECTION SITE IRRITATION [None]
  - JUVENILE ARTHRITIS [None]
